FAERS Safety Report 22194953 (Version 1)
Quarter: 2023Q2

REPORT INFORMATION
  Report Type: Spontaneous
  Country: CH (occurrence: CH)
  Receive Date: 20230411
  Receipt Date: 20230411
  Transmission Date: 20230722
  Serious: Yes (Other)
  Sender: FDA-Public Use
  Company Number: CH-SM-2023-11477

PATIENT
  Age: 46 Year
  Sex: Female
  Weight: 81.3 kg

DRUGS (8)
  1. LIRAGLUTIDE [Suspect]
     Active Substance: LIRAGLUTIDE
     Indication: Product used for unknown indication
     Dosage: 3MG
     Route: 058
     Dates: start: 20220901, end: 20230219
  2. AMISULPRIDE [Suspect]
     Active Substance: AMISULPRIDE
     Indication: Product used for unknown indication
     Dosage: 200MG
     Route: 048
     Dates: end: 20230218
  3. ZYPREXA [Suspect]
     Active Substance: OLANZAPINE
     Indication: Product used for unknown indication
     Dosage: 5MG
     Route: 048
     Dates: end: 20230219
  4. SEROPRAM (CITALOPRAM HYDROCHLORIDE) [Suspect]
     Active Substance: CITALOPRAM HYDROCHLORIDE
     Indication: Product used for unknown indication
     Dosage: 20MG
     Route: 048
     Dates: end: 20230220
  5. SEROPRAM (CITALOPRAM HYDROCHLORIDE) [Suspect]
     Active Substance: CITALOPRAM HYDROCHLORIDE
     Dosage: 10MG
     Route: 048
     Dates: start: 20230221
  6. ZOLPIDEM TARTRATE [Suspect]
     Active Substance: ZOLPIDEM TARTRATE
     Indication: Product used for unknown indication
     Dosage: 10MG
     Route: 048
     Dates: end: 20230219
  7. ZOLPIDEM TARTRATE [Suspect]
     Active Substance: ZOLPIDEM TARTRATE
     Dosage: 5 MG
     Route: 048
     Dates: start: 20230220
  8. ACETAMINOPHEN [Suspect]
     Active Substance: ACETAMINOPHEN
     Indication: Product used for unknown indication
     Dosage: BEI BEDARF, MAX. 1 G/D
     Route: 048

REACTIONS (1)
  - Drug-induced liver injury [Recovering/Resolving]

NARRATIVE: CASE EVENT DATE: 20230219
